FAERS Safety Report 10020665 (Version 5)
Quarter: 2014Q1

REPORT INFORMATION
  Report Type: Spontaneous
  Country: US (occurrence: None)
  Receive Date: 20131125
  Receipt Date: 20140122
  Transmission Date: 20141002
  Serious: Yes (Life-Threatening, Other)
  Sender: FDA-Public Use
  Company Number: ADR-2013-01686

PATIENT
  Age: 66 Year
  Sex: Male

DRUGS (11)
  1. DILAUDID [Suspect]
     Indication: CANCER PAIN
  2. AMITRIPTYLINE [Suspect]
  3. WELCHOL [Suspect]
  4. ULTRAM [Suspect]
  5. PROTONIX [Suspect]
  6. CYMBALTA [Suspect]
  7. NEURONTIN [Suspect]
  8. LISINOPRIL [Suspect]
  9. NORVASC [Suspect]
  10. PRAVACHOL [Suspect]
  11. HYDROMORPHONE/ BUPIVACAINE [Suspect]
     Dosage: 40MG, 2%

REACTIONS (10)
  - Overdose [None]
  - Cardiac arrest [None]
  - Brain injury [None]
  - Blindness [None]
  - Cardio-respiratory arrest [None]
  - Cerebrovascular accident [None]
  - Neck pain [None]
  - Back pain [None]
  - Arthralgia [None]
  - Phantom pain [None]
